FAERS Safety Report 25847450 (Version 1)
Quarter: 2025Q3

REPORT INFORMATION
  Report Type: Spontaneous
  Country: US (occurrence: US)
  Receive Date: 20250925
  Receipt Date: 20250925
  Transmission Date: 20251020
  Serious: No
  Sender: RECKITT BENCKISER
  Company Number: US-INDIVIOR US-INDV-156123-2024

PATIENT
  Sex: Male

DRUGS (2)
  1. PERSERIS [Suspect]
     Active Substance: RISPERIDONE
     Indication: Product used for unknown indication
     Dosage: 90 MILLIGRAM, QMO
     Route: 058
     Dates: start: 20240811
  2. PERSERIS [Suspect]
     Active Substance: RISPERIDONE

REACTIONS (3)
  - Off label use [Unknown]
  - Weight increased [Unknown]
  - Fatigue [Recovering/Resolving]

NARRATIVE: CASE EVENT DATE: 20240801
